FAERS Safety Report 4941006-3 (Version None)
Quarter: 2006Q1

REPORT INFORMATION
  Report Type: 
  Country: None (occurrence: None)
  Receive Date: 20060313
  Receipt Date: 20060222
  Transmission Date: 20060701
  Serious: Yes (Death, Hospitalization, Other)
  Sender: FDA-Public Use
  Company Number: PHBS2006JP02867

PATIENT
  Age: 75 Year
  Sex: Female

DRUGS (6)
  1. PREDNISOLONE [Concomitant]
     Indication: INTERSTITIAL LUNG DISEASE
     Dosage: 30 MG/D
     Route: 048
  2. PREDNISOLONE [Concomitant]
     Dosage: 25 MG/D
     Route: 065
  3. PREDNISOLONE [Concomitant]
     Dosage: 40 MG/D
     Route: 065
  4. CYCLOSPORINE [Suspect]
     Indication: INTERSTITIAL LUNG DISEASE
     Dosage: 100 MG/D
     Route: 048
  5. CYCLOSPORINE [Suspect]
     Dosage: 25 MG/D
     Route: 065
     Dates: end: 20050201
  6. WARFARIN [Concomitant]

REACTIONS (21)
  - ANTINUCLEAR ANTIBODY INCREASED [None]
  - BLOOD LACTATE DEHYDROGENASE INCREASED [None]
  - C-REACTIVE PROTEIN INCREASED [None]
  - CARDIOLIPIN ANTIBODY POSITIVE [None]
  - CYTOMEGALOVIRUS ANTIBODY POSITIVE [None]
  - CYTOMEGALOVIRUS MUCOCUTANEOUS ULCER [None]
  - DISEASE PROGRESSION [None]
  - DISSEMINATED INTRAVASCULAR COAGULATION [None]
  - DNA ANTIBODY POSITIVE [None]
  - HAEMOGLOBIN DECREASED [None]
  - HERPES SIMPLEX SEROLOGY POSITIVE [None]
  - INTERSTITIAL LUNG DISEASE [None]
  - MULTI-ORGAN FAILURE [None]
  - MYOCARDIAL INFARCTION [None]
  - OCCULT BLOOD [None]
  - PERIANAL ERYTHEMA [None]
  - PLATELET COUNT DECREASED [None]
  - PROTEIN TOTAL DECREASED [None]
  - RENAL IMPAIRMENT [None]
  - TUBERCULIN TEST POSITIVE [None]
  - ULCER HAEMORRHAGE [None]
